FAERS Safety Report 8016091-5 (Version None)
Quarter: 2011Q4

REPORT INFORMATION
  Report Type: 
  Country: None (occurrence: None)
  Receive Date: 20111230
  Receipt Date: 20111222
  Transmission Date: 20120403
  Serious: Yes (Hospitalization)
  Sender: FDA-Public Use
  Company Number: US-US-EMD SERONO, INC.-7075471

PATIENT
  Sex: Female
  Weight: 76 kg

DRUGS (6)
  1. BACLOFEN [Concomitant]
     Indication: MUSCLE SPASTICITY
     Route: 048
     Dates: start: 20060101
  2. REBIF [Suspect]
     Indication: MULTIPLE SCLEROSIS
     Route: 058
     Dates: start: 20100924
  3. OXYBUTYNIN [Concomitant]
     Indication: NEUROGENIC BLADDER
     Route: 048
     Dates: start: 20100219
  4. TIIZANIDINE [Concomitant]
     Indication: MUSCLE SPASTICITY
     Route: 048
     Dates: start: 20110513
  5. CITALOPRAM HYDROBROMIDE [Concomitant]
     Indication: DEPRESSION
     Route: 048
     Dates: start: 20070101
  6. UNKNOWN MEDICATIONS [Concomitant]

REACTIONS (5)
  - NECROTISING FASCIITIS [None]
  - BLOOD PRESSURE INCREASED [None]
  - WOUND INFECTION [None]
  - FALL [None]
  - ASTHENIA [None]
